FAERS Safety Report 8364173-0 (Version None)
Quarter: 2012Q1

REPORT INFORMATION
  Report Type: 
  Country: None (occurrence: None)
  Receive Date: 20120323
  Receipt Date: 20111109
  Transmission Date: 20120608
  Serious: Yes (Hospitalization)
  Sender: FDA-Public Use
  Company Number: 163-21880-11111450

PATIENT
  Age: 65 Year
  Sex: Male

DRUGS (14)
  1. ZOCOR [Concomitant]
  2. PEPCID [Concomitant]
  3. NOVOLIN N [Concomitant]
  4. TERAZOSIN HCL [Concomitant]
  5. REVLIMID [Suspect]
     Indication: MULTIPLE MYELOMA
     Dosage: 15 MG, QD X 21/28 DAYS, PO
     Route: 048
     Dates: start: 20110201, end: 20110501
  6. K-TAB [Concomitant]
  7. HYDRALAZINE HCL [Concomitant]
  8. DECADRON [Concomitant]
  9. BLOOD TRANSFUSIONS (BLOOD TRANSFUSION, AUXILIARY PRODUCTS) [Concomitant]
  10. NORVASC [Concomitant]
  11. ZOVIRAX [Concomitant]
  12. VITAMIN B12 [Concomitant]
  13. COUMADIN [Concomitant]
  14. ROCALTROL [Concomitant]

REACTIONS (5)
  - RENAL IMPAIRMENT [None]
  - ANAEMIA [None]
  - SEPSIS [None]
  - CONDITION AGGRAVATED [None]
  - PNEUMONIA [None]
